FAERS Safety Report 14789734 (Version 1)
Quarter: 2018Q2

REPORT INFORMATION
  Report Type: Spontaneous
  Country: US (occurrence: US)
  Receive Date: 20180423
  Receipt Date: 20180423
  Transmission Date: 20180711
  Serious: No
  Sender: FDA-Public Use
  Company Number: US-PFIZER INC-2018161105

PATIENT
  Age: 55 Year
  Sex: Female
  Weight: 63.5 kg

DRUGS (1)
  1. ADVIL [Suspect]
     Active Substance: IBUPROFEN
     Indication: BREAKTHROUGH PAIN
     Dosage: 400 MG, 3X/DAY,TAKE IT AT 7 AM, 3 TIME IN 11 PM AROUND THE CLOCK. IT IS 200MG EACH TABLET
     Dates: start: 20180309

REACTIONS (3)
  - Insomnia [Unknown]
  - Drug ineffective [Unknown]
  - Tinnitus [Not Recovered/Not Resolved]

NARRATIVE: CASE EVENT DATE: 20180312
